FAERS Safety Report 8419182-X (Version None)
Quarter: 2012Q2

REPORT INFORMATION
  Report Type: 
  Country: None (occurrence: None)
  Receive Date: 20120607
  Receipt Date: 20120530
  Transmission Date: 20120825
  Serious: Yes (Death, Life-Threatening, Hospitalization)
  Sender: FDA-Public Use
  Company Number: NO-TEVA-340767ISR

PATIENT
  Sex: Male

DRUGS (4)
  1. LOSARTAN [Concomitant]
     Route: 048
  2. WARFARIN SODIUM [Suspect]
     Indication: ATRIAL FIBRILLATION
     Route: 048
  3. BISOPROLOL FUMARATE [Concomitant]
     Route: 048
  4. ACETYLSALICYLIC ACID SRT [Suspect]
     Dosage: 75 MILLIGRAM;
     Route: 048

REACTIONS (3)
  - SUBARACHNOID HAEMORRHAGE [None]
  - HAEMATEMESIS [None]
  - DEATH [None]
